FAERS Safety Report 7104408-5 (Version None)
Quarter: 2010Q4

REPORT INFORMATION
  Report Type: 
  Country: None (occurrence: None)
  Receive Date: 20101115
  Receipt Date: 20101019
  Transmission Date: 20110411
  Serious: Yes (Other)
  Sender: FDA-Public Use
  Company Number: GB-AMGEN-GBRCT2010000914

PATIENT

DRUGS (2)
  1. ETANERCEPT [Suspect]
     Indication: JUVENILE ARTHRITIS
     Dosage: UNK
     Dates: start: 20100326
  2. MACROGOL/POTASSIUM CHLORIDE/SODIUM BICARBONATE/SODIUM CHLORIDE [Concomitant]
     Dosage: PRN, UNKNOWN DOSE
     Route: 048
     Dates: start: 20080601

REACTIONS (1)
  - VITAMIN D DEFICIENCY [None]
